FAERS Safety Report 8720324 (Version 2)
Quarter: 2012Q4

REPORT INFORMATION
  Report Type: 
  Country: IE (occurrence: IE)
  Receive Date: 20120813
  Receipt Date: 20120830
  Transmission Date: 20130627
  Serious: Yes (Hospitalization, Other)
  Sender: FDA-Public Use
  Company Number: IE-ELI_LILLY_AND_COMPANY-IE201208002278

PATIENT
  Sex: Female

DRUGS (19)
  1. FORSTEO [Suspect]
     Indication: OSTEOPOROSIS
     Dosage: 20 ug, qd
     Route: 058
     Dates: start: 20120629
  2. VERSATIS [Concomitant]
  3. ASPIRIN [Concomitant]
  4. ASACOLON [Concomitant]
  5. CALCICHEW-D3 FORTE [Concomitant]
  6. MOVICOL [Concomitant]
  7. BENDROFLUMETHIAZIDE [Concomitant]
  8. OXYNORM [Concomitant]
  9. IMURAN [Concomitant]
  10. DUROGESIC [Concomitant]
  11. IMOVANE [Concomitant]
  12. COZAAR [Concomitant]
  13. DELTACORTRIL [Concomitant]
  14. TARGIN [Concomitant]
  15. PARACETAMOL [Concomitant]
  16. INEGY [Concomitant]
  17. ATENOLOL [Concomitant]
  18. FLOXAPEN [Concomitant]
  19. NEXIUM [Concomitant]

REACTIONS (4)
  - Spinal compression fracture [Unknown]
  - Back pain [Unknown]
  - Pain [Unknown]
  - Ill-defined disorder [Unknown]
